FAERS Safety Report 14240010 (Version 2)
Quarter: 2018Q2

REPORT INFORMATION
  Report Type: Spontaneous
  Country: GB (occurrence: GB)
  Receive Date: 20171130
  Receipt Date: 20180423
  Transmission Date: 20180711
  Serious: Yes (Other)
  Sender: FDA-Public Use
  Company Number: GB-ASTRAZENECA-2017SF20461

PATIENT
  Age: 67 Year
  Sex: Male

DRUGS (19)
  1. ALENDRONIC ACID [Concomitant]
     Active Substance: ALENDRONIC ACID
  2. NICORANDIL [Concomitant]
     Active Substance: NICORANDIL
  3. PREDNISOLONE. [Concomitant]
     Active Substance: PREDNISOLONE
  4. RAMIPRIL. [Concomitant]
     Active Substance: RAMIPRIL
  5. CARBOCISTEINE [Concomitant]
     Active Substance: CARBOCYSTEINE
  6. QUININE SULFATE. [Concomitant]
     Active Substance: QUININE SULFATE
  7. GABAPENTIN. [Concomitant]
     Active Substance: GABAPENTIN
  8. LANSOPRAZOLE. [Concomitant]
     Active Substance: LANSOPRAZOLE
  9. DOXYCYCLINE. [Concomitant]
     Active Substance: DOXYCYCLINE
  10. FOSTAIR [Concomitant]
     Active Substance: BECLOMETHASONE\FORMOTEROL
  11. CODEINE PHOSPHATE [Concomitant]
     Active Substance: CODEINE PHOSPHATE
  12. ROFLUMILAST. [Suspect]
     Active Substance: ROFLUMILAST
     Indication: CHRONIC OBSTRUCTIVE PULMONARY DISEASE
     Dosage: 500UG/INHAL DAILY
     Route: 048
     Dates: start: 20171006, end: 20171030
  13. PARACETAMOL [Concomitant]
     Active Substance: ACETAMINOPHEN
  14. ADCAL-D3 [Concomitant]
     Active Substance: CALCIUM CARBONATE\CHOLECALCIFEROL
  15. TIOTROPIUM BROMIDE [Concomitant]
     Active Substance: TIOTROPIUM BROMIDE
  16. ATORVASTATIN [Concomitant]
     Active Substance: ATORVASTATIN
  17. TILDIEM LA [Concomitant]
     Active Substance: DILTIAZEM HYDROCHLORIDE
  18. ACETYLSALICYLIC ACID [Concomitant]
     Active Substance: ASPIRIN
  19. SALBUTAMOL [Concomitant]
     Active Substance: ALBUTEROL

REACTIONS (4)
  - Malaise [Unknown]
  - Headache [Unknown]
  - Tremor [Recovered/Resolved]
  - Abnormal loss of weight [Unknown]

NARRATIVE: CASE EVENT DATE: 20171006
